FAERS Safety Report 5337132-X (Version None)
Quarter: 2007Q2

REPORT INFORMATION
  Report Type: 
  Country: None (occurrence: None)
  Receive Date: 20070523
  Receipt Date: 20070509
  Transmission Date: 20071010
  Serious: Yes (Other)
  Sender: FDA-Public Use
  Company Number: 156282ISR

PATIENT
  Age: 53 Year
  Sex: Female

DRUGS (1)
  1. TAMOXIFEN CITRATE [Suspect]
     Dosage: ORAL
     Route: 048

REACTIONS (4)
  - ATONIC SEIZURES [None]
  - COORDINATION ABNORMAL [None]
  - DYSPHAGIA [None]
  - MOBILITY DECREASED [None]
